FAERS Safety Report 15788387 (Version 1)
Quarter: 2019Q1

REPORT INFORMATION
  Report Type: Spontaneous
  Country: US (occurrence: US)
  Receive Date: 20190104
  Receipt Date: 20190104
  Transmission Date: 20190417
  Serious: No
  Sender: FDA-Public Use
  Company Number: US-APOTEX-2018AP019281

PATIENT
  Age: 70 Year
  Sex: Female

DRUGS (1)
  1. CALCITONIN SALMON. [Suspect]
     Active Substance: CALCITONIN SALMON
     Indication: SENILE OSTEOPOROSIS
     Dosage: 3.7 ML, UNK
     Route: 065
     Dates: start: 20170917

REACTIONS (2)
  - Red blood cells urine positive [Unknown]
  - Back pain [Unknown]

NARRATIVE: CASE EVENT DATE: 20180807
